FAERS Safety Report 21027636 (Version 1)
Quarter: 2022Q2

REPORT INFORMATION
  Report Type: Spontaneous
  Country: US (occurrence: US)
  Receive Date: 20220630
  Receipt Date: 20220630
  Transmission Date: 20220720
  Serious: No
  Sender: FDA-Public Use
  Company Number: US-PFIZER INC-202200906581

PATIENT
  Age: 76 Year
  Sex: Male
  Weight: 88.45 kg

DRUGS (1)
  1. VFEND [Suspect]
     Active Substance: VORICONAZOLE
     Indication: Myelodysplastic syndrome
     Dosage: TAKES ONE IN THE MORNING AND ONE IN THE EVENING
     Dates: start: 20220312

REACTIONS (2)
  - Off label use [Unknown]
  - Weight decreased [Unknown]
